FAERS Safety Report 8127049-X (Version None)
Quarter: 2012Q1

REPORT INFORMATION
  Report Type: 
  Country: None (occurrence: None)
  Receive Date: 20120210
  Receipt Date: 20120201
  Transmission Date: 20120608
  Serious: Yes (Other)
  Sender: FDA-Public Use
  Company Number: US-BAYER-201012509NA

PATIENT
  Sex: Female
  Weight: 79 kg

DRUGS (13)
  1. YAZ [Suspect]
     Indication: CONTRACEPTION
  2. YASMIN [Suspect]
     Indication: PREMENSTRUAL SYNDROME
  3. YAZ [Suspect]
     Indication: ACNE
     Dosage: UNK
     Dates: start: 20070601, end: 20090701
  4. GUJAPHENYL [Concomitant]
  5. MICROGESTIN 1.5/30 [Concomitant]
     Dosage: UNK
     Dates: start: 20090503, end: 20091105
  6. YASMIN [Suspect]
     Indication: ACNE
     Dosage: UNK
     Dates: start: 20070601, end: 20090701
  7. YAZ [Suspect]
  8. OMEPRAZOLE [Concomitant]
     Indication: GASTRIC ULCER
     Dosage: UNK
     Dates: start: 20090504
  9. PHENYLEPHRINE [Concomitant]
  10. YASMIN [Suspect]
  11. FAMOTIDINE [Concomitant]
     Indication: GASTRIC ULCER
     Dosage: UNK
     Dates: start: 20090430
  12. YASMIN [Suspect]
     Indication: CONTRACEPTION
  13. YAZ [Suspect]
     Indication: PREMENSTRUAL SYNDROME

REACTIONS (2)
  - DEEP VEIN THROMBOSIS [None]
  - AORTIC ANEURYSM [None]
